FAERS Safety Report 16742525 (Version 1)
Quarter: 2019Q3

REPORT INFORMATION
  Report Type: Report from Study
  Country: US (occurrence: US)
  Receive Date: 20190826
  Receipt Date: 20190826
  Transmission Date: 20191005
  Serious: No
  Sender: FDA-Public Use
  Company Number: PHEH2019US035234

PATIENT
  Sex: Female
  Weight: 67.12 kg

DRUGS (2)
  1. OPSUMIT [Concomitant]
     Active Substance: MACITENTAN
     Indication: PRODUCT USED FOR UNKNOWN INDICATION
     Route: 065
  2. TREPROSTINIL. [Suspect]
     Active Substance: TREPROSTINIL
     Indication: PULMONARY ARTERIAL HYPERTENSION
     Dosage: 144 NG/KG/MIN, CONTINUOUS
     Route: 042
     Dates: start: 20190410

REACTIONS (2)
  - Catheter site erythema [Unknown]
  - Chest discomfort [Unknown]
